FAERS Safety Report 13080231 (Version 1)
Quarter: 2017Q1

REPORT INFORMATION
  Report Type: Spontaneous
  Country: GB (occurrence: GB)
  Receive Date: 20170103
  Receipt Date: 20170103
  Transmission Date: 20170428
  Serious: Yes (Other)
  Sender: FDA-Public Use
  Company Number: PHFR2016GB010028

PATIENT
  Sex: Female

DRUGS (1)
  1. ZOMETA [Suspect]
     Active Substance: ZOLEDRONIC ACID
     Indication: PLASMA CELL MYELOMA
     Dosage: 4 MG, QMO (4 WEEKLY)
     Route: 065

REACTIONS (6)
  - Cancer pain [Not Recovered/Not Resolved]
  - Urinary tract infection [Unknown]
  - Insomnia [Unknown]
  - Incontinence [Unknown]
  - Constipation [Unknown]
  - Asthenia [Unknown]
